FAERS Safety Report 9605119 (Version 2)
Quarter: 2013Q4

REPORT INFORMATION
  Report Type: Spontaneous
  Country: BR (occurrence: BR)
  Receive Date: 20131008
  Receipt Date: 20131104
  Transmission Date: 20140711
  Serious: Yes (Hospitalization, Other)
  Sender: FDA-Public Use
  Company Number: BR-PFIZER INC-2013283165

PATIENT
  Sex: Male

DRUGS (3)
  1. FRONTAL [Suspect]
     Indication: DRUG DETOXIFICATION
     Dosage: 1 MG, UNK
     Route: 048
     Dates: start: 2010
  2. FRONTAL [Suspect]
     Dosage: 6 TABLETS OF 1MG DAILY, UNSPECIFIED FREQUENCY
     Route: 048
     Dates: start: 201309, end: 2013
  3. VALIUM [Suspect]
     Dosage: 120 MG, DAILY

REACTIONS (13)
  - Drug detoxification [Unknown]
  - Psychotic disorder [Unknown]
  - Hearing impaired [Unknown]
  - Dizziness [Unknown]
  - Speech disorder [Not Recovered/Not Resolved]
  - Joint stiffness [Recovered/Resolved]
  - Slow speech [Recovered/Resolved]
  - Muscle contractions involuntary [Not Recovered/Not Resolved]
  - Insomnia [Recovered/Resolved]
  - Dysarthria [Recovered/Resolved]
  - Hypoaesthesia [Recovered/Resolved]
  - Dyskinesia [Recovered/Resolved]
  - Off label use [Unknown]
